FAERS Safety Report 4746951-X (Version None)
Quarter: 2005Q3

REPORT INFORMATION
  Report Type: 
  Country: None (occurrence: None)
  Receive Date: 20050817
  Receipt Date: 20050808
  Transmission Date: 20060218
  Serious: Yes (Congenital Anomaly)
  Sender: FDA-Public Use
  Company Number: PHFR2005GB02694

PATIENT

DRUGS (2)
  1. DICLOFENAC [Suspect]
     Route: 064
  2. NITROFURANTOIN [Suspect]
     Route: 064

REACTIONS (3)
  - DRUG EXPOSURE DURING PREGNANCY [None]
  - HAND DEFORMITY [None]
  - LIMB MALFORMATION [None]
